FAERS Safety Report 10152600 (Version 2)
Quarter: 2014Q2

REPORT INFORMATION
  Report Type: Spontaneous
  Country: US (occurrence: US)
  Receive Date: 20140505
  Receipt Date: 20140617
  Transmission Date: 20141212
  Serious: Yes (Hospitalization, Other)
  Sender: FDA-Public Use
  Company Number: US-PFIZER INC-2014118467

PATIENT
  Age: 75 Year
  Sex: Female

DRUGS (29)
  1. DOXORUBICIN HCL [Suspect]
     Dosage: UNK
  2. NEXAVAR [Suspect]
     Indication: HEPATIC CANCER
     Dosage: 800 MG, DAILY (TWO 200 MG CAPS BID)
     Route: 048
  3. ALBUTEROL [Concomitant]
     Dosage: UNK, AS NEEDED
  4. ALPRAZOLAM [Concomitant]
     Dosage: 0.5 MG, 3X/DAY
  5. AVAPRO [Concomitant]
     Dosage: 150 MG, 2X/DAY
  6. AZELASTINE HYDROCHLORIDE [Concomitant]
     Dosage: 1% 2 SPRAYS EACH NOSTRIL, AS NEEDED (3X/DAILY)
  7. BUDESONIDE [Concomitant]
     Dosage: UNK, 2X/DAY
  8. CALCIUM + VIT D [Concomitant]
     Dosage: 1000 MG, 1X/DAY
  9. CARAFATE [Concomitant]
     Dosage: 1 G, 2X/DAY
  10. DRISDOL [Concomitant]
     Dosage: 50000 IU, 4X/DAY
  11. DULERA [Concomitant]
     Dosage: 5 MCG 2 PUFFS, 2X/DAY
  12. ENOXAPARIN [Concomitant]
     Dosage: 1 DF, 2X/DAY (1 MORNING AND EVENING)
  13. FLUTICASONE PROPIONATE [Concomitant]
     Dosage: 50 MCG 1-2 SPRAYS EACH NOSTRIL, DAILY
  14. GAS-X [Concomitant]
     Dosage: 1 DF, 1X/DAY
  15. GENERLAC [Concomitant]
     Dosage: 4 TBSP, 2X/DAY
  16. HYDROCHLOROTHIAZIDE [Concomitant]
     Dosage: 12.5 MG, 2X/DAY
  17. HYDROMORPHONE [Concomitant]
     Dosage: 2 MG, AS NEEDED
  18. HYDROXYZINE HYDROCHLORIDE [Concomitant]
     Dosage: 25 MG, AS NEEDED
  19. LOPERAMIDE [Concomitant]
     Dosage: 2 MG, AS NEEDED
  20. MILK THISTLE [Concomitant]
     Dosage: 175 MG, 2X/DAY
  21. NITROSTAT [Concomitant]
     Dosage: 0.4 MG, AS NEEDED
  22. PANTOPRAZOLE [Concomitant]
     Dosage: 40 MG, 2X/DAY
  23. PRENATAL VITAMINS [Concomitant]
     Dosage: 1 DF, 2X/DAY
  24. TEMAZEPAM [Concomitant]
     Dosage: 15 MG, 1X/DAY
  25. TRAVATAN [Concomitant]
     Dosage: 2 GTT, DAILY
  26. UREA [Concomitant]
     Dosage: 40% APPLIED TO AFFECTED AREA, AS NEEDED
  27. URSODIOL [Concomitant]
     Dosage: 1200 MG, 1X/DAY
  28. VANCOMYCIN [Concomitant]
     Dosage: UNK
  29. WARFARIN [Concomitant]
     Dosage: 5 MG, 1X/DAY

REACTIONS (9)
  - Biliary cirrhosis primary [Unknown]
  - Hypertension [Unknown]
  - Fatigue [Unknown]
  - Weight decreased [Unknown]
  - Eating disorder [Unknown]
  - Stomatitis [Unknown]
  - Diarrhoea [Unknown]
  - Irritable bowel syndrome [Unknown]
  - Dumping syndrome [Unknown]
